FAERS Safety Report 8436597-4 (Version None)
Quarter: 2012Q2

REPORT INFORMATION
  Report Type: 
  Country: None (occurrence: None)
  Receive Date: 20120614
  Receipt Date: 20120601
  Transmission Date: 20120825
  Serious: No
  Sender: FDA-Public Use
  Company Number: US-ASTRAZENECA-2010SE21187

PATIENT
  Age: 75 Year
  Sex: Female

DRUGS (1)
  1. TOPROL-XL [Suspect]
     Route: 048
     Dates: start: 20091001

REACTIONS (12)
  - HEADACHE [None]
  - DYSSTASIA [None]
  - BACK INJURY [None]
  - MALAISE [None]
  - DRUG DOSE OMISSION [None]
  - HYPERTENSION [None]
  - FEELING ABNORMAL [None]
  - NERVOUSNESS [None]
  - PAIN [None]
  - NAUSEA [None]
  - CHEST PAIN [None]
  - DRUG INEFFECTIVE [None]
